FAERS Safety Report 9621118 (Version 1)
Quarter: 2013Q4

REPORT INFORMATION
  Report Type: Spontaneous
  Country: US (occurrence: US)
  Receive Date: 20131015
  Receipt Date: 20131015
  Transmission Date: 20140711
  Serious: No
  Sender: FDA-Public Use
  Company Number: US-BAYER-2013-124028

PATIENT
  Age: 27 Year
  Sex: Male
  Weight: 106.58 kg

DRUGS (1)
  1. ALEVE TABLET [Suspect]
     Indication: TOOTHACHE
     Dosage: AT MOST 14, ONCE
     Route: 048
     Dates: start: 20131009, end: 20131009

REACTIONS (2)
  - Extra dose administered [None]
  - Abdominal discomfort [Not Recovered/Not Resolved]
